FAERS Safety Report 10901071 (Version 3)
Quarter: 2015Q3

REPORT INFORMATION
  Report Type: Spontaneous
  Country: FR (occurrence: FR)
  Receive Date: 20150310
  Receipt Date: 20150713
  Transmission Date: 20151125
  Serious: Yes (Hospitalization, Other)
  Sender: FDA-Public Use
  Company Number: FR-DSJP-DSE-2015-107305

PATIENT
  Age: 65 Year
  Sex: Male
  Weight: 85 kg

DRUGS (3)
  1. ZANIDIP [Concomitant]
     Active Substance: LERCANIDIPINE HYDROCHLORIDE
     Indication: PRODUCT USED FOR UNKNOWN INDICATION
     Dosage: 10 MG, QD
     Route: 048
     Dates: start: 20040217, end: 20150313
  2. CRESTOR [Concomitant]
     Active Substance: ROSUVASTATIN CALCIUM
     Indication: PRODUCT USED FOR UNKNOWN INDICATION
     Route: 048
  3. ALTEISDUO 20 MG / 12,5 MG [Suspect]
     Active Substance: HYDROCHLOROTHIAZIDE\OLMESARTAN MEDOXOMIL
     Indication: HYPERTENSION
     Dosage: 20/12.5 MG, QD
     Route: 048
     Dates: start: 20080415, end: 201502

REACTIONS (2)
  - Prerenal failure [Recovered/Resolved]
  - Malabsorption [Recovered/Resolved]

NARRATIVE: CASE EVENT DATE: 20150131
